FAERS Safety Report 24782153 (Version 4)
Quarter: 2025Q1

REPORT INFORMATION
  Report Type: Report from Study
  Country: CN (occurrence: CN)
  Receive Date: 20241227
  Receipt Date: 20250218
  Transmission Date: 20250408
  Serious: Yes (Hospitalization)
  Sender: EISAI
  Company Number: CN-Eisai-EC-2024-181241

PATIENT
  Age: 45 Year
  Sex: Female
  Weight: 64 kg

DRUGS (15)
  1. ERIBULIN [Suspect]
     Active Substance: ERIBULIN
     Indication: Breast cancer
     Dates: start: 20241122, end: 20241213
  2. ERIBULIN [Suspect]
     Active Substance: ERIBULIN
     Dates: start: 20241227, end: 20241227
  3. ERIBULIN [Suspect]
     Active Substance: ERIBULIN
     Dates: start: 20250114
  4. CAPECITABINE [Suspect]
     Active Substance: CAPECITABINE
     Indication: Breast cancer
     Dates: start: 20241122, end: 20241206
  5. CAPECITABINE [Suspect]
     Active Substance: CAPECITABINE
     Dates: start: 20241213, end: 20241228
  6. CAPECITABINE [Suspect]
     Active Substance: CAPECITABINE
     Dates: start: 20250114, end: 20250127
  7. CAPECITABINE [Suspect]
     Active Substance: CAPECITABINE
     Dates: start: 20250207
  8. ONDANSETRON HYDROCHLORIDE [Concomitant]
     Active Substance: ONDANSETRON HYDROCHLORIDE
     Indication: Vomiting
     Dates: start: 20241212, end: 20241223
  9. CYSTEINE\GLYCINE\GLYCYRRHIZIN [Concomitant]
     Active Substance: CYSTEINE\GLYCINE\GLYCYRRHIZIN
     Indication: Hepatobiliary disorder prophylaxis
     Dates: start: 20241212
  10. BICYCLOL [Concomitant]
     Active Substance: BICYCLOL
     Indication: Hepatobiliary disorder prophylaxis
     Dates: start: 20241212, end: 20241221
  11. FENOFIBRATE [Concomitant]
     Active Substance: FENOFIBRATE
     Indication: Blood triglycerides increased
     Dates: start: 20241215
  12. OLANZAPINE [Concomitant]
     Active Substance: OLANZAPINE
     Indication: Vomiting
     Dates: start: 20241219, end: 20241219
  13. HUMAN GRANULOCYTE COLONY-STIMULATING FACTOR [Concomitant]
     Indication: White blood cell count decreased
     Dates: start: 20241219, end: 20241219
  14. IRON SUCROSE [Concomitant]
     Active Substance: IRON SUCROSE
     Indication: Anaemia
     Dates: start: 20241219, end: 20241221
  15. HUMAN ERYTHROPOIETIN [Concomitant]
     Indication: Anaemia
     Dates: start: 20241219

REACTIONS (2)
  - Platelet count decreased [Recovered/Resolved]
  - Anaemia [Recovered/Resolved]

NARRATIVE: CASE EVENT DATE: 20241220
